FAERS Safety Report 7635443-6 (Version None)
Quarter: 2011Q3

REPORT INFORMATION
  Report Type: 
  Country: None (occurrence: None)
  Receive Date: 20110718
  Receipt Date: 20110706
  Transmission Date: 20111222
  Serious: Yes (Hospitalization)
  Sender: FDA-Public Use
  Company Number: 1000021389

PATIENT
  Age: 81 Year
  Sex: Female

DRUGS (4)
  1. QUETIAPINE [Concomitant]
  2. MEMANTINE HCL [Suspect]
     Indication: DEMENTIA ALZHEIMER'S TYPE
     Dosage: 20 MG (10 MG, 2 IN 1 D), ORAL; 100 MG (100 MG, 1 IN 1 D), ORAL
     Route: 048
     Dates: start: 20110404, end: 20110522
  3. MEMANTINE HCL [Suspect]
     Indication: DEMENTIA ALZHEIMER'S TYPE
     Dosage: 20 MG (10 MG, 2 IN 1 D), ORAL; 100 MG (100 MG, 1 IN 1 D), ORAL
     Route: 048
     Dates: start: 20110523, end: 20110526
  4. RIVASTIGMINE [Concomitant]

REACTIONS (3)
  - ACCIDENTAL OVERDOSE [None]
  - WRONG TECHNIQUE IN DRUG USAGE PROCESS [None]
  - AGITATION [None]
